FAERS Safety Report 18072534 (Version 1)
Quarter: 2020Q3

REPORT INFORMATION
  Report Type: Spontaneous
  Country: US (occurrence: US)
  Receive Date: 20200725
  Receipt Date: 20200725
  Transmission Date: 20201103
  Serious: No
  Sender: FDA-Public Use
  Company Number: None

PATIENT
  Age: 67 Year
  Sex: Female

DRUGS (1)
  1. FORTEO [Suspect]
     Active Substance: TERIPARATIDE
     Indication: OSTEOPOROSIS
     Route: 058
     Dates: start: 20200305

REACTIONS (7)
  - Heat exhaustion [None]
  - Headache [None]
  - Fatigue [None]
  - Tension [None]
  - Dizziness [None]
  - Slow response to stimuli [None]
  - Irritability [None]

NARRATIVE: CASE EVENT DATE: 20200601
